FAERS Safety Report 4940881-6 (Version None)
Quarter: 2006Q1

REPORT INFORMATION
  Report Type: 
  Country: None (occurrence: None)
  Receive Date: 20060313
  Receipt Date: 20060302
  Transmission Date: 20060701
  Serious: Yes (Hospitalization)
  Sender: FDA-Public Use
  Company Number: CA-BRISTOL-MYERS SQUIBB COMPANY-13301619

PATIENT
  Age: 66 Year
  Sex: Male

DRUGS (3)
  1. ABATACEPT [Suspect]
     Indication: RHEUMATOID ARTHRITIS
     Route: 042
     Dates: start: 20020618
  2. METHOTREXATE [Suspect]
     Dates: start: 20030321
  3. HYDROXYCHLOROQUINE SULFATE [Concomitant]
     Dates: start: 20030904

REACTIONS (3)
  - ABDOMINAL PAIN [None]
  - ANOREXIA [None]
  - CHOLELITHIASIS [None]
